FAERS Safety Report 18299496 (Version 1)
Quarter: 2020Q3

REPORT INFORMATION
  Report Type: Spontaneous
  Country: US (occurrence: US)
  Receive Date: 20200922
  Receipt Date: 20200922
  Transmission Date: 20201103
  Serious: Yes (Other)
  Sender: FDA-Public Use
  Company Number: None

PATIENT
  Age: 25 Year
  Sex: Male

DRUGS (5)
  1. ZUBSOLV 5.7?1.4 MG SUBLINGUAL TABLET SUBLINGUAL [Concomitant]
     Dates: start: 20191114, end: 20191121
  2. ZUBSOLV [Suspect]
     Active Substance: BUPRENORPHINE HYDROCHLORIDE\NALOXONE HYDROCHLORIDE
     Indication: DRUG DEPENDENCE
     Dates: start: 20191114, end: 20191121
  3. SUBOXONE 8?2 MG SUBLINGUAL FILM [Concomitant]
     Dates: start: 20170515, end: 20180222
  4. SUBOXONE [Suspect]
     Active Substance: BUPRENORPHINE HYDROCHLORIDE\NALOXONE HYDROCHLORIDE
     Indication: DRUG DEPENDENCE
     Dates: start: 20170515, end: 20180222
  5. SUBOXONE 8?2 MG SUBLINGUAL FILM [Concomitant]
     Dates: start: 20180222, end: 20191114

REACTIONS (1)
  - Mouth ulceration [None]

NARRATIVE: CASE EVENT DATE: 20170515
